FAERS Safety Report 4269839-X (Version None)
Quarter: 2004Q1

REPORT INFORMATION
  Report Type: 
  Country: None (occurrence: None)
  Receive Date: 20040112
  Receipt Date: 20031226
  Transmission Date: 20041129
  Serious: Yes (Other)
  Sender: FDA-Public Use
  Company Number: 189394

PATIENT
  Age: 39 Year
  Sex: Male
  Weight: 117.9352 kg

DRUGS (7)
  1. AVONEX [Suspect]
     Indication: MULTIPLE SCLEROSIS
     Dates: start: 20000701, end: 20000801
  2. AVONEX [Suspect]
     Indication: MULTIPLE SCLEROSIS
     Dosage: 30 MCG QW M
     Route: 030
     Dates: start: 20000801
  3. BLADDER MEDICATION [Concomitant]
  4. ANTIDEPRESANT [Concomitant]
  5. SLEEPING PILL [Concomitant]
  6. TOPAMAX [Concomitant]
  7. PREVACID [Concomitant]

REACTIONS (1)
  - SKIN CANCER [None]
